FAERS Safety Report 20049911 (Version 26)
Quarter: 2024Q1

REPORT INFORMATION
  Report Type: Report from Study
  Country: CO (occurrence: CO)
  Receive Date: 20211109
  Receipt Date: 20240114
  Transmission Date: 20240410
  Serious: Yes (Other)
  Sender: FDA-Public Use
  Company Number: CO-TAKEDA-CO202017154

PATIENT
  Age: 38 Year
  Sex: Female
  Weight: 51 kg

DRUGS (24)
  1. ICATIBANT [Suspect]
     Active Substance: ICATIBANT ACETATE
     Indication: Hereditary angioedema
     Dosage: UNK
     Route: 058
     Dates: start: 2019
  2. ICATIBANT [Suspect]
     Active Substance: ICATIBANT ACETATE
     Indication: Hereditary angioedema
     Dosage: UNK
     Route: 058
     Dates: start: 2019
  3. ICATIBANT [Suspect]
     Active Substance: ICATIBANT ACETATE
     Dosage: UNK
     Route: 058
     Dates: start: 20200926
  4. ICATIBANT [Suspect]
     Active Substance: ICATIBANT ACETATE
     Dosage: UNK
     Route: 058
     Dates: start: 20200926
  5. ICATIBANT [Suspect]
     Active Substance: ICATIBANT ACETATE
     Dosage: UNK
     Route: 058
     Dates: start: 20201001
  6. ICATIBANT [Suspect]
     Active Substance: ICATIBANT ACETATE
     Dosage: UNK
     Route: 058
     Dates: start: 20201001
  7. ICATIBANT [Suspect]
     Active Substance: ICATIBANT ACETATE
     Dosage: UNK
     Route: 058
  8. ICATIBANT [Suspect]
     Active Substance: ICATIBANT ACETATE
     Dosage: UNK
     Route: 058
  9. ICATIBANT [Suspect]
     Active Substance: ICATIBANT ACETATE
     Dosage: UNK UNK, Q8HR
     Route: 058
  10. ICATIBANT [Suspect]
     Active Substance: ICATIBANT ACETATE
     Dosage: UNK UNK, Q8HR
     Route: 058
  11. ICATIBANT [Suspect]
     Active Substance: ICATIBANT ACETATE
     Dosage: UNK UNK, Q6HR
     Route: 058
  12. ICATIBANT [Suspect]
     Active Substance: ICATIBANT ACETATE
     Dosage: UNK UNK, Q6HR
     Route: 058
  13. ICATIBANT [Suspect]
     Active Substance: ICATIBANT ACETATE
     Dosage: UNK
     Route: 058
  14. ICATIBANT [Suspect]
     Active Substance: ICATIBANT ACETATE
     Dosage: UNK
     Route: 058
  15. ICATIBANT [Suspect]
     Active Substance: ICATIBANT ACETATE
     Dosage: 30 MILLIGRAM, Q6HR
     Route: 058
  16. ICATIBANT [Suspect]
     Active Substance: ICATIBANT ACETATE
     Dosage: 30 MILLIGRAM, Q6HR
     Route: 058
  17. ICATIBANT [Suspect]
     Active Substance: ICATIBANT ACETATE
     Dosage: UNK UNK, Q6HR
     Route: 058
  18. ICATIBANT [Suspect]
     Active Substance: ICATIBANT ACETATE
     Dosage: UNK UNK, Q6HR
     Route: 058
  19. ICATIBANT [Suspect]
     Active Substance: ICATIBANT ACETATE
     Dosage: UNK
     Route: 058
  20. ICATIBANT [Suspect]
     Active Substance: ICATIBANT ACETATE
     Dosage: UNK
     Route: 058
  21. TAKHZYRO [Suspect]
     Active Substance: LANADELUMAB-FLYO
     Indication: Hereditary angioedema
     Dosage: 300 MILLIGRAM, Q2WEEKS
     Route: 058
     Dates: start: 20230824
  22. TAKHZYRO [Suspect]
     Active Substance: LANADELUMAB-FLYO
     Indication: Hereditary angioedema
     Dosage: 300 MILLIGRAM, Q2WEEKS
     Route: 058
     Dates: start: 20230824
  23. TAKHZYRO [Suspect]
     Active Substance: LANADELUMAB-FLYO
     Indication: Hereditary angioedema
     Dosage: 300 MILLIGRAM, Q2WEEKS
     Route: 058
     Dates: start: 20230824
  24. LEVOTHYROXINE [Concomitant]
     Active Substance: LEVOTHYROXINE
     Dosage: UNK
     Route: 065

REACTIONS (6)
  - Hypothyroidism [Unknown]
  - Weight decreased [Recovered/Resolved]
  - Weight increased [Unknown]
  - Gastritis [Unknown]
  - Product availability issue [Not Recovered/Not Resolved]
  - Product prescribing error [Unknown]

NARRATIVE: CASE EVENT DATE: 20200520
